FAERS Safety Report 10068643 (Version 6)
Quarter: 2015Q2

REPORT INFORMATION
  Report Type: Report from Study
  Country: CN (occurrence: CN)
  Receive Date: 20140409
  Receipt Date: 20150528
  Transmission Date: 20150821
  Serious: Yes (Other)
  Sender: FDA-Public Use
  Company Number: CN-GLAXOSMITHKLINE-B0983686A

PATIENT
  Age: 57 Year
  Sex: Female
  Weight: 45.2 kg

DRUGS (1)
  1. ELTROMBOPAG [Suspect]
     Active Substance: ELTROMBOPAG
     Indication: IMMUNE THROMBOCYTOPENIC PURPURA
     Dosage: 19FEB14-05MAR14 -25MG EVERYDAY06MAR14-19MAR14 -50MG EVERYDAY20MAR14-29MAR14-75MG EVERYDAY30MAR1[...]
     Dates: start: 20140219

REACTIONS (1)
  - Cerebral infarction [Recovered/Resolved with Sequelae]

NARRATIVE: CASE EVENT DATE: 20140327
